FAERS Safety Report 15476824 (Version 2)
Quarter: 2018Q4

REPORT INFORMATION
  Report Type: Spontaneous
  Country: US (occurrence: US)
  Receive Date: 20181009
  Receipt Date: 20181108
  Transmission Date: 20190205
  Serious: Yes (Other)
  Sender: FDA-Public Use
  Company Number: US-AMGEN-USASP2018136998

PATIENT
  Age: 67 Year
  Sex: Female

DRUGS (3)
  1. CALCIUM [Concomitant]
     Active Substance: CALCIUM
  2. PROLIA [Suspect]
     Active Substance: DENOSUMAB
     Indication: OSTEOPOROSIS
     Dosage: UNK
     Route: 065
     Dates: start: 201806, end: 201806
  3. PROLIA [Suspect]
     Active Substance: DENOSUMAB
     Indication: BONE LOSS

REACTIONS (10)
  - Arthralgia [Unknown]
  - Gait disturbance [Unknown]
  - Rib fracture [Unknown]
  - Neck pain [Recovered/Resolved]
  - Back pain [Not Recovered/Not Resolved]
  - Pleural effusion [Unknown]
  - Joint stiffness [Not Recovered/Not Resolved]
  - Bone pain [Not Recovered/Not Resolved]
  - Muscle strain [Unknown]
  - Myalgia [Unknown]

NARRATIVE: CASE EVENT DATE: 2018
